FAERS Safety Report 12998244 (Version 1)
Quarter: 2016Q4

REPORT INFORMATION
  Report Type: Spontaneous
  Country: US (occurrence: US)
  Receive Date: 20161202
  Receipt Date: 20161202
  Transmission Date: 20170207
  Serious: Yes (Other)
  Sender: FDA-Public Use
  Company Number: None

PATIENT
  Age: 25 Year
  Sex: Female
  Weight: 69.75 kg

DRUGS (2)
  1. BUTALBITAL/ACETAMINOPHEN/CAFFTAB [Suspect]
     Active Substance: ACETAMINOPHEN\BUTALBITAL\CAFFEINE
     Indication: MIGRAINE
     Route: 048
     Dates: start: 20160902, end: 20161202
  2. PRENATAL PLUS TAB [Concomitant]

REACTIONS (3)
  - Syncope [None]
  - Alopecia [None]
  - Therapy cessation [None]

NARRATIVE: CASE EVENT DATE: 20161201
